FAERS Safety Report 5414737-9 (Version None)
Quarter: 2007Q3

REPORT INFORMATION
  Report Type: 
  Country: None (occurrence: None)
  Receive Date: 20070813
  Receipt Date: 20070802
  Transmission Date: 20080115
  Serious: Yes (Hospitalization)
  Sender: FDA-Public Use
  Company Number: 2007BI016389

PATIENT
  Age: 52 Year
  Sex: Female

DRUGS (1)
  1. AVONEX [Suspect]
     Indication: MULTIPLE SCLEROSIS
     Dosage: 30 UG; QW; IM
     Route: 030

REACTIONS (6)
  - ANURIA [None]
  - CONSTIPATION [None]
  - DYSPNOEA [None]
  - EYE OEDEMA [None]
  - HAEMOGLOBIN DECREASED [None]
  - SWELLING [None]
